FAERS Safety Report 5076754-0 (Version None)
Quarter: 2006Q3

REPORT INFORMATION
  Report Type: 
  Country: None (occurrence: None)
  Receive Date: 20060807
  Receipt Date: 20060724
  Transmission Date: 20061208
  Serious: Yes (Other)
  Sender: FDA-Public Use
  Company Number: JP200607004441

PATIENT
  Age: 65 Year
  Sex: Male

DRUGS (10)
  1. HUMALOG MIX 75/25 [Suspect]
     Indication: DIABETES MELLITUS
     Dosage: 24 U, DAILY (1/D), SUBCUTANEOUS
     Route: 058
     Dates: end: 20060101
  2. HUMALOG MIX 25L / 75NPL PEN (HUMALOG MIX 25L / 75NPL PEN) PEN, DISPOSA [Concomitant]
  3. ITOROL (ISOSORBIDE MONONITRATE) TABLET [Concomitant]
  4. FAMOTIDINE [Concomitant]
  5. MUCOSTA (REBAMIPIDE) [Concomitant]
  6. NORVASC /DEN/ (AMLODIPINE BESILATE) TABLET [Concomitant]
  7. BLOPRESS /GFR/ (CANDESARTAN CILEXETIL) TABLET [Concomitant]
  8. LIPIDIL (FENOFIBRATE) CAPSULE [Concomitant]
  9. METHYCOBAL (MECOBALAMIN) [Concomitant]
  10. JUVELA /JPN/ (TOCOPHERYL NICOTINATE) [Concomitant]

REACTIONS (3)
  - FATIGUE [None]
  - LIVER DISORDER [None]
  - RASH [None]
